FAERS Safety Report 6495109-5 (Version None)
Quarter: 2009Q4

REPORT INFORMATION
  Report Type: 
  Country: None (occurrence: None)
  Receive Date: 20091214
  Receipt Date: 20090501
  Transmission Date: 20100525
  Serious: Yes (Other)
  Sender: FDA-Public Use
  Company Number: US-BRISTOL-MYERS SQUIBB COMPANY-14609275

PATIENT
  Age: 51 Year
  Sex: Male

DRUGS (9)
  1. ABILIFY [Suspect]
     Dosage: DOSE INCREASED ON 27APR2009 TO 10MG/DAILY
     Dates: start: 20090301
  2. AMBIEN [Concomitant]
  3. LANTUS [Concomitant]
  4. SIMVASTATIN [Concomitant]
  5. RANITIDINE [Concomitant]
  6. ATENOLOL [Concomitant]
  7. AMLODIPINE [Concomitant]
  8. LISINOPRIL [Concomitant]
  9. CYMBALTA [Concomitant]

REACTIONS (1)
  - BLOOD GLUCOSE INCREASED [None]
